FAERS Safety Report 9486852 (Version 2)
Quarter: 2013Q3

REPORT INFORMATION
  Report Type: Spontaneous
  Country: JP (occurrence: JP)
  Receive Date: 20130829
  Receipt Date: 20130829
  Transmission Date: 20140515
  Serious: Yes (Death, Other)
  Sender: FDA-Public Use
  Company Number: JP-MPIJNJ-2012-02054

PATIENT
  Sex: 0

DRUGS (12)
  1. VELCADE [Suspect]
     Indication: PLASMA CELL MYELOMA
     Dosage: 1.3 MG/M2, UNK
     Route: 042
     Dates: start: 201110
  2. VELCADE [Suspect]
     Dosage: 1.9 MG, UNK
     Route: 042
     Dates: start: 20111209, end: 20130323
  3. LENALIDOMIDE [Suspect]
     Indication: PRODUCT USED FOR UNKNOWN INDICATION
     Dosage: 5 MG, UNK
     Route: 048
  4. DEXAMETHASONE [Concomitant]
     Indication: PLASMA CELL MYELOMA
     Dosage: 10 UNK, UNK
  5. DEXAMETHASONE [Concomitant]
     Dosage: 9.9 MG, UNK
     Route: 048
  6. ITRIZOLE [Concomitant]
     Dosage: 200 MG, UNK
     Route: 048
  7. BIOFERMIN R [Concomitant]
     Dosage: 3 G, UNK
     Route: 048
  8. MARZULENE [Concomitant]
     Dosage: 3 DF, UNK
     Route: 048
  9. ALOSITOL [Concomitant]
     Dosage: 200 MG, UNK
     Route: 048
  10. CELECOXIB [Concomitant]
     Dosage: 200 MG, UNK
     Route: 048
  11. SENNOSIDE                          /00571902/ [Concomitant]
     Dosage: 24 MG, UNK
     Route: 048
  12. DAIKENTYUTO [Concomitant]

REACTIONS (18)
  - Plasma cell myeloma [Fatal]
  - Cardiac failure [Recovered/Resolved]
  - Hypercalcaemia [Recovered/Resolved]
  - Tumour lysis syndrome [Recovering/Resolving]
  - Renal failure [Not Recovered/Not Resolved]
  - Cerebral haemorrhage [Recovered/Resolved]
  - Diarrhoea [Not Recovered/Not Resolved]
  - Platelet count decreased [Not Recovered/Not Resolved]
  - Hypophosphataemia [Unknown]
  - Renal failure chronic [Not Recovered/Not Resolved]
  - Hypogammaglobulinaemia [Unknown]
  - Disseminated intravascular coagulation [Unknown]
  - Hypomagnesaemia [Unknown]
  - Herpes zoster [Unknown]
  - Gastric ulcer [Unknown]
  - Dysuria [Unknown]
  - Intracranial haematoma [Unknown]
  - Hypokalaemia [Unknown]
